FAERS Safety Report 19238667 (Version 1)
Quarter: 2021Q2

REPORT INFORMATION
  Report Type: Spontaneous
  Country: US (occurrence: US)
  Receive Date: 20210510
  Receipt Date: 20210510
  Transmission Date: 20210717
  Serious: Yes (Other)
  Sender: FDA-Public Use
  Company Number: US-PFIZER INC-2021223176

PATIENT
  Age: 66 Year
  Sex: Female

DRUGS (6)
  1. IBRANCE [Suspect]
     Active Substance: PALBOCICLIB
     Indication: METASTASES TO PERITONEUM
     Dosage: 125 MG
  2. LETROZOLE. [Suspect]
     Active Substance: LETROZOLE
     Indication: METASTASES TO PERITONEUM
     Dosage: UNK
  3. LETROZOLE. [Suspect]
     Active Substance: LETROZOLE
     Indication: BREAST CANCER STAGE IV
  4. IBRANCE [Suspect]
     Active Substance: PALBOCICLIB
     Indication: METASTASES TO LUNG
  5. IBRANCE [Suspect]
     Active Substance: PALBOCICLIB
     Indication: BREAST CANCER STAGE IV
     Dosage: 100 MG, CYCLIC (ONCE A DAY, DAILY FOR 21 DAYS, THEN OFF FOR 7 DAYS)
     Route: 048
  6. LETROZOLE. [Suspect]
     Active Substance: LETROZOLE
     Indication: METASTASES TO LUNG

REACTIONS (5)
  - Neutropenia [Unknown]
  - Malaise [Unknown]
  - Tooth loss [Unknown]
  - Product dose omission issue [Unknown]
  - Weight decreased [Unknown]
